FAERS Safety Report 10974850 (Version 1)
Quarter: 2015Q1

REPORT INFORMATION
  Report Type: Spontaneous
  Country: US (occurrence: None)
  Receive Date: 20150226
  Receipt Date: 20150226
  Transmission Date: 20150721
  Serious: No
  Sender: FDA-Public Use
  Company Number: TPA2010A02928

PATIENT
  Age: 65 Year
  Sex: Male
  Weight: 131.54 kg

DRUGS (1)
  1. ULORIC [Suspect]
     Active Substance: FEBUXOSTAT
     Indication: GOUT
     Route: 048
     Dates: start: 20100401, end: 20100415

REACTIONS (4)
  - Nausea [None]
  - Arthralgia [None]
  - Pain in extremity [None]
  - Diarrhoea [None]
